FAERS Safety Report 15620646 (Version 3)
Quarter: 2018Q4

REPORT INFORMATION
  Report Type: Report from Study
  Country: CA (occurrence: CA)
  Receive Date: 20181115
  Receipt Date: 20181207
  Transmission Date: 20190205
  Serious: Yes (Other)
  Sender: FDA-Public Use
  Company Number: CA-ROCHE-2214355

PATIENT
  Sex: Male

DRUGS (11)
  1. AMLODIPINE [Concomitant]
     Active Substance: AMLODIPINE BESYLATE
  2. PREDNISONE. [Concomitant]
     Active Substance: PREDNISONE
  3. ESBRIET [Suspect]
     Active Substance: PIRFENIDONE
     Dosage: FREQUENCY (534MG-0MG-267MG)
     Route: 048
     Dates: start: 20181022
  4. ESBRIET [Suspect]
     Active Substance: PIRFENIDONE
     Route: 048
     Dates: start: 20181004
  5. ESBRIET [Suspect]
     Active Substance: PIRFENIDONE
     Route: 048
     Dates: start: 20181015
  6. ESBRIET [Suspect]
     Active Substance: PIRFENIDONE
     Route: 048
     Dates: start: 20181103
  7. ESBRIET [Suspect]
     Active Substance: PIRFENIDONE
     Indication: IDIOPATHIC PULMONARY FIBROSIS
     Route: 048
     Dates: start: 20180911
  8. ESBRIET [Suspect]
     Active Substance: PIRFENIDONE
     Route: 048
     Dates: start: 201811
  9. PANTOLOC [Concomitant]
     Active Substance: PANTOPRAZOLE SODIUM
  10. ESBRIET [Suspect]
     Active Substance: PIRFENIDONE
     Route: 048
     Dates: start: 20181019
  11. DEXILANT [Concomitant]
     Active Substance: DEXLANSOPRAZOLE

REACTIONS (1)
  - Choking sensation [Not Recovered/Not Resolved]
